FAERS Safety Report 10090524 (Version 1)
Quarter: 2014Q2

REPORT INFORMATION
  Report Type: Report from Study
  Country: US (occurrence: US)
  Receive Date: 20140421
  Receipt Date: 20140421
  Transmission Date: 20141212
  Serious: Yes (Other)
  Sender: FDA-Public Use
  Company Number: US-MYLANLABS-2014S1008596

PATIENT
  Age: 14 Year
  Sex: Female

DRUGS (2)
  1. AMNESTEEM CAPSULES [Suspect]
     Dates: start: 2014, end: 2014
  2. AMNESTEEM CAPSULES [Suspect]
     Dates: start: 2014, end: 2014

REACTIONS (1)
  - Ill-defined disorder [Not Recovered/Not Resolved]
